FAERS Safety Report 17542389 (Version 1)
Quarter: 2020Q1

REPORT INFORMATION
  Report Type: Spontaneous
  Country: US (occurrence: US)
  Receive Date: 20200314
  Receipt Date: 20200314
  Transmission Date: 20200409
  Serious: Yes (Hospitalization, Other)
  Sender: FDA-Public Use
  Company Number: US-AMGEN-USASP2020041025

PATIENT
  Age: 70 Year
  Sex: Female
  Weight: 79.82 kg

DRUGS (1)
  1. NEULASTA [Suspect]
     Active Substance: PEGFILGRASTIM
     Indication: PRODUCT USED FOR UNKNOWN INDICATION
     Dosage: UNK
     Route: 065

REACTIONS (5)
  - Device issue [Unknown]
  - Application site pain [Unknown]
  - Febrile neutropenia [Unknown]
  - Device use error [Unknown]
  - Product dose omission [Unknown]

NARRATIVE: CASE EVENT DATE: 20200221
